FAERS Safety Report 14845797 (Version 1)
Quarter: 2018Q2

REPORT INFORMATION
  Report Type: Spontaneous
  Country: FR (occurrence: FR)
  Receive Date: 20180504
  Receipt Date: 20180504
  Transmission Date: 20180711
  Serious: Yes (Other)
  Sender: FDA-Public Use
  Company Number: FR-MERCK KGAA-2047157

PATIENT
  Age: 43 Year
  Sex: Female

DRUGS (1)
  1. NOVOTHYROX [Suspect]
     Active Substance: LEVOTHYROXINE SODIUM
     Indication: POST PROCEDURAL HYPOTHYROIDISM

REACTIONS (19)
  - Hypothermia [Recovering/Resolving]
  - Depression [None]
  - Fear [None]
  - Apallic syndrome [None]
  - Mood altered [None]
  - Malaise [Recovering/Resolving]
  - Dysstasia [None]
  - Bradyphrenia [None]
  - Social avoidant behaviour [None]
  - Alopecia [None]
  - Fatigue [None]
  - Irritability [None]
  - Loss of personal independence in daily activities [None]
  - Asthenia [None]
  - Emotional distress [None]
  - Sensation of foreign body [None]
  - Blood phosphorus increased [None]
  - Loss of consciousness [Recovering/Resolving]
  - Somnolence [None]

NARRATIVE: CASE EVENT DATE: 201709
